FAERS Safety Report 10884476 (Version 1)
Quarter: 2015Q1

REPORT INFORMATION
  Report Type: Report from Study
  Country: CA (occurrence: CA)
  Receive Date: 20150304
  Receipt Date: 20150304
  Transmission Date: 20150721
  Serious: Yes (Hospitalization)
  Sender: FDA-Public Use
  Company Number: CA-JNJFOC-20140516035

PATIENT
  Age: 66 Year
  Sex: Female
  Weight: 107 kg

DRUGS (3)
  1. REMICADE [Suspect]
     Active Substance: INFLIXIMAB
     Indication: CROHN^S DISEASE
     Dosage: INFUSION NO. 66
     Route: 042
     Dates: start: 20140523
  2. REMICADE [Suspect]
     Active Substance: INFLIXIMAB
     Indication: CROHN^S DISEASE
     Dosage: INFUSION NUMBER 66 STARTED ON DAY OF THIS REPORT (23-MAY-2014)
     Route: 042
  3. REMICADE [Suspect]
     Active Substance: INFLIXIMAB
     Indication: CROHN^S DISEASE
     Dosage: INFUSION NO. 66
     Route: 042
     Dates: start: 20140414

REACTIONS (12)
  - Urinary tract infection [Recovering/Resolving]
  - Incision site infection [Recovering/Resolving]
  - Fall [Recovering/Resolving]
  - Wound infection [Recovering/Resolving]
  - Abdominal hernia [Recovering/Resolving]
  - Procedural site reaction [Recovering/Resolving]
  - Myocardial infarction [Recovering/Resolving]
  - Incoherent [Unknown]
  - Abdominal operation [Unknown]
  - Somnolence [Unknown]
  - Renal failure [Recovering/Resolving]
  - Intestinal resection [Recovering/Resolving]

NARRATIVE: CASE EVENT DATE: 2013
